FAERS Safety Report 24699591 (Version 2)
Quarter: 2024Q4

REPORT INFORMATION
  Report Type: Spontaneous
  Country: SK (occurrence: SK)
  Receive Date: 20241205
  Receipt Date: 20241210
  Transmission Date: 20250115
  Serious: Yes (Other)
  Sender: CELLTRION
  Company Number: SK-ROCHE-3573757

PATIENT

DRUGS (3)
  1. RITUXIMAB [Suspect]
     Active Substance: RITUXIMAB
     Indication: Acquired haemophilia
     Dosage: 375 MG/M2, EVERY 7 DAYS (TOTAL 4 DOSES)
     Route: 042
     Dates: end: 20220905
  2. CYCLOPHOSPHAMIDE [Suspect]
     Active Substance: CYCLOPHOSPHAMIDE
     Indication: Acquired haemophilia
     Dosage: UNK
     Route: 065
     Dates: end: 20220905
  3. PREDNISONE [Concomitant]
     Active Substance: PREDNISONE

REACTIONS (3)
  - Neutropenia [Unknown]
  - Urinary tract infection [Unknown]
  - Off label use [Unknown]
